FAERS Safety Report 9579929 (Version 2)
Quarter: 2013Q4

REPORT INFORMATION
  Report Type: Spontaneous
  Country: CA (occurrence: CA)
  Receive Date: 20131002
  Receipt Date: 20131007
  Transmission Date: 20140711
  Serious: Yes (Other)
  Sender: FDA-Public Use
  Company Number: CA-ASTRAZENECA-2013SE71198

PATIENT
  Sex: Female

DRUGS (22)
  1. NEXIUM [Suspect]
     Route: 048
     Dates: end: 2013
  2. DIAMICRON [Suspect]
     Indication: DIABETES MELLITUS
     Route: 065
     Dates: end: 2013
  3. LYRICA [Suspect]
     Route: 065
     Dates: end: 2013
  4. DOMPERIDONE [Suspect]
     Route: 065
     Dates: end: 2013
  5. RITUXAN [Suspect]
     Indication: SJOGREN^S SYNDROME
     Dates: start: 20070525
  6. LANTIUS INSULIN [Suspect]
     Route: 065
     Dates: end: 2013
  7. DEPOMEDROL [Suspect]
     Route: 065
  8. DIPHENHYDRAMINE HYDROCHLORIDE [Concomitant]
  9. NORVASC [Concomitant]
  10. ALTACE [Concomitant]
  11. SYNTHROID [Concomitant]
  12. ELTROXIN [Concomitant]
  13. PREDNISONE [Concomitant]
  14. EZETROL [Concomitant]
  15. CRESTOR [Concomitant]
  16. VITAMIN D [Concomitant]
  17. JANUVIA [Concomitant]
  18. APO-HYDRO [Concomitant]
  19. LEVEMIR [Concomitant]
  20. HUMULOG INSULIN [Concomitant]
  21. PENTALOC [Concomitant]
  22. ZOFRAM [Concomitant]

REACTIONS (3)
  - Vascular occlusion [Unknown]
  - Arthritis [Unknown]
  - Adverse drug reaction [Unknown]
